FAERS Safety Report 23470513 (Version 1)
Quarter: 2024Q1

REPORT INFORMATION
  Report Type: Spontaneous
  Country: US (occurrence: US)
  Receive Date: 20240202
  Receipt Date: 20240202
  Transmission Date: 20240409
  Serious: Yes (Death, Other)
  Sender: FDA-Public Use
  Company Number: US-MYLANLABS-2024M1010450

PATIENT
  Age: 12 Year
  Sex: Male

DRUGS (2)
  1. DOXORUBICIN [Suspect]
     Active Substance: DOXORUBICIN
     Indication: Osteosarcoma
     Dosage: UNK
     Route: 065
  2. IFOSFAMIDE [Suspect]
     Active Substance: IFOSFAMIDE
     Indication: Osteosarcoma
     Dosage: UNK
     Route: 065

REACTIONS (5)
  - Acute myeloid leukaemia [Fatal]
  - Drug ineffective [Unknown]
  - Disease progression [Unknown]
  - Mental status changes [Unknown]
  - Off label use [Unknown]
